FAERS Safety Report 4994455-1 (Version None)
Quarter: 2006Q1

REPORT INFORMATION
  Report Type: 
  Country: None (occurrence: None)
  Receive Date: 20060313
  Receipt Date: 20051128
  Transmission Date: 20060701
  Serious: No
  Sender: FDA-Public Use
  Company Number: 2005-BP-20674PB

PATIENT
  Age: 72 Year
  Sex: Female

DRUGS (4)
  1. SPIRIVA [Suspect]
     Indication: CHRONIC OBSTRUCTIVE PULMONARY DISEASE
     Dosage: 18 MCG (SEE TEXT, 1 CAP QD), IH
     Route: 055
     Dates: start: 20041101
  2. PREDNISONE TAB [Concomitant]
  3. ZOCOR [Concomitant]
  4. ALBUTEROL [Concomitant]

REACTIONS (1)
  - INSOMNIA [None]
